APPROVED DRUG PRODUCT: DORIDEN
Active Ingredient: GLUTETHIMIDE
Strength: 250MG
Dosage Form/Route: TABLET;ORAL
Application: N009519 | Product #002
Applicant: SANOFI AVENTIS US LLC
Approved: Approved Prior to Jan 1, 1982 | RLD: No | RS: No | Type: DISCN